FAERS Safety Report 5291403-4 (Version None)
Quarter: 2007Q2

REPORT INFORMATION
  Report Type: 
  Country: None (occurrence: None)
  Receive Date: 20070402
  Receipt Date: 20070320
  Transmission Date: 20071010
  Serious: Yes (Other)
  Sender: FDA-Public Use
  Company Number: 2007SP005216

PATIENT
  Age: 63 Year
  Sex: Female

DRUGS (5)
  1. VIRAFERONPEG [Suspect]
     Indication: HEPATITIS C
     Dosage: 0.5 MCG/KG; QW
     Dates: start: 20061101
  2. REBETOL [Suspect]
     Indication: HEPATITIS C
     Dosage: 1000 MG; QD
     Dates: start: 20061101
  3. DETENSIEL [Concomitant]
  4. LANSOPRAZOLE [Concomitant]
  5. DOLIPRANE [Concomitant]

REACTIONS (2)
  - ANAEMIA [None]
  - PURPURA [None]
